FAERS Safety Report 10434832 (Version 1)
Quarter: 2014Q3

REPORT INFORMATION
  Report Type: Spontaneous
  Country: US (occurrence: None)
  Receive Date: 20140815
  Receipt Date: 20140815
  Transmission Date: 20150326
  Serious: No
  Sender: FDA-Public Use
  Company Number: 2014TUS004471

PATIENT
  Age: 76 Year
  Sex: Female

DRUGS (5)
  1. BRINTELLIX [Suspect]
     Active Substance: VORTIOXETINE HYDROBROMIDE
     Indication: MAJOR DEPRESSION
     Route: 048
     Dates: start: 20140416, end: 20140530
  2. BUSPAR (BUSPIRONE HYDROCHLORIDE) [Concomitant]
  3. CLONAZEPAM. [Concomitant]
     Active Substance: CLONAZEPAM
  4. CRESTOR [Concomitant]
     Active Substance: ROSUVASTATIN CALCIUM
  5. NAPROXEN. [Concomitant]
     Active Substance: NAPROXEN

REACTIONS (5)
  - Irritability [None]
  - Pain [None]
  - Paranoia [None]
  - Anger [None]
  - Feeling abnormal [None]
